FAERS Safety Report 4947134-0 (Version None)
Quarter: 2006Q1

REPORT INFORMATION
  Report Type: 
  Country: None (occurrence: None)
  Receive Date: 20060317
  Receipt Date: 20060305
  Transmission Date: 20060701
  Serious: Yes (Other)
  Sender: FDA-Public Use
  Company Number: TN-KINGPHARMUSA00001-K200600303

PATIENT
  Age: 30 Year
  Sex: Female

DRUGS (1)
  1. SEPTRA [Suspect]
     Route: 048

REACTIONS (6)
  - LEUKOCYTOCLASTIC VASCULITIS [None]
  - NECROSIS [None]
  - PURPURA [None]
  - SKIN LESION [None]
  - SKIN NECROSIS [None]
  - URTICARIA [None]
